FAERS Safety Report 21490959 (Version 1)
Quarter: 2022Q4

REPORT INFORMATION
  Report Type: Spontaneous
  Country: DK (occurrence: DK)
  Receive Date: 20221021
  Receipt Date: 20221021
  Transmission Date: 20230113
  Serious: Yes (Disabling)
  Sender: FDA-Public Use
  Company Number: None

PATIENT
  Age: 65 Year
  Sex: Female

DRUGS (2)
  1. HERCEPTIN [Suspect]
     Active Substance: TRASTUZUMAB
     Indication: Breast cancer
     Dosage: DOSAGE: 588 MG, INTERVAL UNKNOWN. DECREASED FROM 777 MG ON 06JUL2020.
     Route: 065
     Dates: start: 20200608, end: 20210517
  2. EPIRUBICIN [Suspect]
     Active Substance: EPIRUBICIN
     Indication: Breast cancer
     Dosage: DOSAGE: 180 MG AT UNKNOWN INTERVAL. STRENGTH: 2 MG/ML. SERIE 1. STOP DATE BEFORE 08JUN2020
     Route: 065
     Dates: start: 202004, end: 2020

REACTIONS (6)
  - Palpitations [Recovering/Resolving]
  - Oedema peripheral [Recovering/Resolving]
  - Cardiac failure [Recovering/Resolving]
  - Bundle branch block left [Not Recovered/Not Resolved]
  - Dyspnoea exertional [Recovering/Resolving]
  - Chest pain [Recovering/Resolving]

NARRATIVE: CASE EVENT DATE: 20210101
